FAERS Safety Report 5093993-3 (Version None)
Quarter: 2006Q3

REPORT INFORMATION
  Report Type: 
  Country: None (occurrence: None)
  Receive Date: 20060829
  Receipt Date: 20060822
  Transmission Date: 20061208
  Serious: Yes (Hospitalization, Other)
  Sender: FDA-Public Use
  Company Number: 216891

PATIENT
  Age: 40 Year
  Sex: Male

DRUGS (2)
  1. EFALIZUMAB(EFALIZUMAB) PWDR + SOLVENT,INJECTION SOLN, 125MG [Suspect]
     Indication: PSORIASIS
     Dosage: 1 MG/KG, 1/WEEK, SUBCUTANEOUS
     Route: 058
     Dates: start: 20050330, end: 20050615
  2. ENBREL [Concomitant]

REACTIONS (2)
  - HEPATITIS B [None]
  - HEPATOTOXICITY [None]
